FAERS Safety Report 16734734 (Version 2)
Quarter: 2019Q3

REPORT INFORMATION
  Report Type: Spontaneous
  Country: CH (occurrence: CH)
  Receive Date: 20190823
  Receipt Date: 20190930
  Transmission Date: 20191005
  Serious: Yes (Hospitalization)
  Sender: FDA-Public Use
  Company Number: CH-TEVA-2019-CH-1098316

PATIENT
  Age: 47 Year
  Sex: Female

DRUGS (1)
  1. MAXALT [Suspect]
     Active Substance: RIZATRIPTAN BENZOATE
     Indication: MIGRAINE
     Route: 065

REACTIONS (3)
  - Acute myocardial infarction [Recovering/Resolving]
  - Acute coronary syndrome [Recovering/Resolving]
  - Prinzmetal angina [Recovering/Resolving]
